FAERS Safety Report 9800813 (Version 1)
Quarter: 2014Q1

REPORT INFORMATION
  Report Type: Not Available
  Country: FR (occurrence: FR)
  Receive Date: 20140107
  Receipt Date: 20140107
  Transmission Date: 20141002
  Serious: Yes (Hospitalization)
  Sender: FDA-Public Use
  Company Number: FR-BEH-2014039837

PATIENT
  Age: 71 Year
  Sex: Female

DRUGS (1)
  1. PRIVIGEN [Suspect]
     Indication: POLYNEUROPATHY
     Route: 042
     Dates: start: 20131209, end: 20131210

REACTIONS (5)
  - Pyrexia [Recovered/Resolved]
  - Pyrexia [Unknown]
  - Chills [Unknown]
  - Malaise [Unknown]
  - Livedo reticularis [Unknown]
